FAERS Safety Report 15902142 (Version 1)
Quarter: 2019Q1

REPORT INFORMATION
  Report Type: Spontaneous
  Country: IR (occurrence: IR)
  Receive Date: 20190201
  Receipt Date: 20190201
  Transmission Date: 20190417
  Serious: Yes (Other)
  Sender: FDA-Public Use
  Company Number: IR-UNICHEM PHARMACEUTICALS (USA) INC-UCM201901-000042

PATIENT
  Age: 43 Year
  Sex: Female

DRUGS (1)
  1. METRONIDAZOLE. [Suspect]
     Active Substance: METRONIDAZOLE
     Indication: HELICOBACTER INFECTION

REACTIONS (8)
  - Nervous system disorder [Recovering/Resolving]
  - Neurotoxicity [Recovering/Resolving]
  - Hemiparesis [Recovering/Resolving]
  - Nystagmus [Recovering/Resolving]
  - Vertigo [Recovering/Resolving]
  - Deafness neurosensory [Recovering/Resolving]
  - Encephalopathy [Recovering/Resolving]
  - Lethargy [Recovering/Resolving]
